FAERS Safety Report 9487331 (Version 4)
Quarter: 2014Q2

REPORT INFORMATION
  Report Type: Report from Study
  Country: CA (occurrence: CA)
  Receive Date: 20130829
  Receipt Date: 20140529
  Transmission Date: 20141212
  Serious: Yes (Other)
  Sender: FDA-Public Use
  Company Number: CA-ROCHE-1235154

PATIENT
  Age: 53 Year
  Sex: Female
  Weight: 77 kg

DRUGS (6)
  1. ACTEMRA [Suspect]
     Indication: RHEUMATOID ARTHRITIS
     Route: 042
     Dates: start: 20110317
  2. ACTEMRA [Suspect]
     Route: 042
     Dates: start: 20120315
  3. ACTEMRA [Suspect]
     Route: 042
     Dates: start: 20130212
  4. ACTEMRA [Suspect]
     Route: 042
     Dates: start: 20131213
  5. METHOTREXATE [Concomitant]
     Route: 048
  6. CELEBREX [Concomitant]

REACTIONS (3)
  - Infection [Recovered/Resolved]
  - Cellulitis [Unknown]
  - Pelvic prolapse [Recovered/Resolved]
